FAERS Safety Report 10211059 (Version 2)
Quarter: 2014Q2

REPORT INFORMATION
  Report Type: Spontaneous
  Country: GB (occurrence: GB)
  Receive Date: 20140602
  Receipt Date: 20140610
  Transmission Date: 20141212
  Serious: Yes (Disabling)
  Sender: FDA-Public Use
  Company Number: GB-TEVA-484316ISR

PATIENT
  Age: 40 Year
  Sex: Female
  Weight: 67 kg

DRUGS (11)
  1. TERBINAFINE [Suspect]
     Indication: ONYCHOMYCOSIS
     Route: 048
     Dates: start: 20140415, end: 20140429
  2. BETAMETHASONE VALERATE [Concomitant]
     Dates: start: 20140224, end: 20140324
  3. CAPASAL [Concomitant]
     Dates: start: 20140224, end: 20140324
  4. CINCHOCAINE [Concomitant]
     Dates: start: 20140217, end: 20140224
  5. CITALOPRAM [Concomitant]
     Dates: start: 20140409
  6. DERMOL [Concomitant]
     Dates: start: 20140224, end: 20140324
  7. EPADERM [Concomitant]
     Dates: start: 20140224, end: 20140324
  8. HAELAN [Concomitant]
     Dates: start: 20140224, end: 20140227
  9. LACTULOSE [Concomitant]
     Dates: start: 20140217, end: 20140227
  10. OMEPRAZOLE [Concomitant]
     Dates: start: 20140321
  11. PREDNISOLONE [Concomitant]
     Dates: start: 20140203

REACTIONS (1)
  - Vasculitic rash [Recovered/Resolved]
